FAERS Safety Report 6936671-5 (Version None)
Quarter: 2010Q3

REPORT INFORMATION
  Report Type: 
  Country: None (occurrence: None)
  Receive Date: 20100823
  Receipt Date: 20100819
  Transmission Date: 20110219
  Serious: Yes (Death, Hospitalization)
  Sender: FDA-Public Use
  Company Number: US-ROCHE-722281

PATIENT
  Sex: Male

DRUGS (1)
  1. VALGANCICLOVIR [Suspect]
     Indication: EYE INFECTION
     Route: 065
     Dates: start: 20100501

REACTIONS (3)
  - CELLULITIS [None]
  - DEATH [None]
  - PNEUMONIA [None]
